FAERS Safety Report 13646946 (Version 2)
Quarter: 2017Q3

REPORT INFORMATION
  Report Type: Spontaneous
  Country: JP (occurrence: JP)
  Receive Date: 20170613
  Receipt Date: 20170713
  Transmission Date: 20171127
  Serious: Yes (Other)
  Sender: FDA-Public Use
  Company Number: PHJP2017JP018410

PATIENT
  Age: 72 Year
  Sex: Male

DRUGS (4)
  1. LOCOL [Suspect]
     Active Substance: FLUVASTATIN SODIUM
     Indication: HYPERCHOLESTEROLAEMIA
     Dosage: 10 MG, QD
     Route: 048
     Dates: start: 20161014, end: 20170602
  2. EPADEL [Concomitant]
     Active Substance: ICOSAPENT
     Indication: HYPERLIPIDAEMIA
     Dosage: 1200 MG, QD
     Route: 048
     Dates: start: 20160603
  3. NEXIUM [Concomitant]
     Active Substance: ESOMEPRAZOLE MAGNESIUM
     Indication: GASTROOESOPHAGEAL REFLUX DISEASE
     Dosage: 20 MG, QD
     Route: 048
     Dates: start: 20160923
  4. LIPIDIL [Concomitant]
     Active Substance: FENOFIBRATE
     Indication: HYPERLIPIDAEMIA
     Dosage: 80 MG, QD
     Route: 048
     Dates: start: 20141107, end: 20170602

REACTIONS (5)
  - Blood creatine phosphokinase increased [Unknown]
  - Asthenia [Unknown]
  - Dysgeusia [Unknown]
  - Atrial fibrillation [Unknown]
  - Blood creatinine increased [Unknown]

NARRATIVE: CASE EVENT DATE: 20161125
